FAERS Safety Report 14563077 (Version 3)
Quarter: 2025Q3

REPORT INFORMATION
  Report Type: Spontaneous
  Country: US (occurrence: US)
  Receive Date: 20180222
  Receipt Date: 20250925
  Transmission Date: 20251020
  Serious: No
  Sender: TEVA
  Company Number: US-TEVA-2018-US-853292

PATIENT
  Sex: Female

DRUGS (1)
  1. TOLTERODINE TARTRATE [Suspect]
     Active Substance: TOLTERODINE TARTRATE
     Indication: Hypertonic bladder
     Route: 065
     Dates: start: 2015, end: 2018

REACTIONS (3)
  - Nocturia [Not Recovered/Not Resolved]
  - Drug ineffective [Unknown]
  - Product physical issue [Unknown]

NARRATIVE: CASE EVENT DATE: 20180103
